FAERS Safety Report 10446957 (Version 1)
Quarter: 2014Q3

REPORT INFORMATION
  Report Type: Spontaneous
  Country: PL (occurrence: PL)
  Receive Date: 20140911
  Receipt Date: 20140911
  Transmission Date: 20150326
  Serious: Yes (Other)
  Sender: FDA-Public Use
  Company Number: PL-PFIZER INC-2014252438

PATIENT
  Age: 72 Year
  Sex: Female

DRUGS (6)
  1. METFORMIN [Suspect]
     Active Substance: METFORMIN HYDROCHLORIDE
     Dosage: UNK
     Route: 065
  2. PANTOPRAZOLE [Suspect]
     Active Substance: PANTOPRAZOLE SODIUM
     Dosage: UNK
     Route: 065
  3. AMLODIPINE BESILATE [Suspect]
     Active Substance: AMLODIPINE BESYLATE
     Dosage: UNK
     Route: 065
  4. ACENOCOUMAROL [Suspect]
     Active Substance: ACENOCOUMAROL
     Dosage: 35 MG, WEEKLY
     Route: 065
  5. BISOPROLOL FUMARATE. [Suspect]
     Active Substance: BISOPROLOL FUMARATE
     Dosage: UNK
     Route: 065
  6. RAMIPRIL. [Suspect]
     Active Substance: RAMIPRIL
     Dosage: UNK
     Route: 065

REACTIONS (10)
  - International normalised ratio fluctuation [Unknown]
  - Extravasation [Unknown]
  - Blood pressure increased [Unknown]
  - Heart rate increased [Unknown]
  - Contusion [Unknown]
  - Mitral valve incompetence [Unknown]
  - Haemorrhage [Unknown]
  - Ejection fraction decreased [Unknown]
  - Atrial fibrillation [Unknown]
  - Left atrial dilatation [Unknown]
